FAERS Safety Report 4897588-3 (Version None)
Quarter: 2006Q1

REPORT INFORMATION
  Report Type: 
  Country: None (occurrence: None)
  Receive Date: 20060201
  Receipt Date: 20060120
  Transmission Date: 20060701
  Serious: Yes (Death, Hospitalization)
  Sender: FDA-Public Use
  Company Number: US-BRISTOL-MYERS SQUIBB COMPANY-13255088

PATIENT
  Age: 82 Year
  Sex: Male

DRUGS (2)
  1. PRAVACHOL [Suspect]
  2. PLAVIX [Suspect]

REACTIONS (2)
  - FALL [None]
  - PNEUMONIA [None]
